FAERS Safety Report 25207383 (Version 1)
Quarter: 2025Q2

REPORT INFORMATION
  Report Type: Spontaneous
  Country: US (occurrence: None)
  Receive Date: 20250416
  Receipt Date: 20250416
  Transmission Date: 20250717
  Serious: Yes (Hospitalization)
  Sender: FDA-CTU
  Company Number: None

PATIENT
  Sex: Female
  Weight: 69.75 kg

DRUGS (4)
  1. WINREVAIR [Suspect]
     Active Substance: SOTATERCEPT-CSRK
     Indication: Pulmonary arterial hypertension
     Route: 058
     Dates: start: 20240521
  2. TADALAFIL [Concomitant]
     Active Substance: TADALAFIL
  3. TECFIDERA [Concomitant]
     Active Substance: DIMETHYL FUMARATE
  4. ALYQ [Concomitant]
     Active Substance: TADALAFIL

REACTIONS (3)
  - Anaemia [None]
  - Haemorrhage [None]
  - Therapy interrupted [None]
